FAERS Safety Report 22089112 (Version 1)
Quarter: 2023Q1

REPORT INFORMATION
  Report Type: Spontaneous
  Country: US (occurrence: US)
  Receive Date: 20230313
  Receipt Date: 20230313
  Transmission Date: 20230418
  Serious: No
  Sender: FDA-Public Use
  Company Number: US-BIOGEN-2019BI00757152

PATIENT
  Sex: Female

DRUGS (2)
  1. TECFIDERA [Suspect]
     Active Substance: DIMETHYL FUMARATE
     Indication: Multiple sclerosis
     Dosage: MAINTENANCE DOSE
     Route: 050
     Dates: start: 20190131
  2. MACROBID [Concomitant]
     Active Substance: NITROFURANTOIN\NITROFURANTOIN MONOHYDRATE
     Route: 050

REACTIONS (6)
  - Gastric disorder [Not Recovered/Not Resolved]
  - Gastrointestinal disorder [Unknown]
  - Urinary tract infection [Unknown]
  - Flatulence [Unknown]
  - Flushing [Unknown]
  - Abdominal pain upper [Unknown]
